FAERS Safety Report 7425717-6 (Version None)
Quarter: 2011Q2

REPORT INFORMATION
  Report Type: 
  Country: None (occurrence: None)
  Receive Date: 20110418
  Receipt Date: 20110418
  Transmission Date: 20111010
  Serious: No
  Sender: FDA-Public Use
  Company Number: None

PATIENT
  Sex: Female
  Weight: 58.9676 kg

DRUGS (2)
  1. TIMOLOL GFS 0.5% [Suspect]
     Indication: OCULAR HYPERTENSION
     Dosage: 1 DROP DAILY 046
     Dates: start: 20040819
  2. TIMOLOL GFS 0.5% [Suspect]
     Indication: OCULAR HYPERTENSION
     Dosage: 1 DROP DAILY 046
     Dates: start: 20030612

REACTIONS (4)
  - KERATITIS [None]
  - PRODUCT SUBSTITUTION ISSUE [None]
  - EYE IRRITATION [None]
  - BURNING SENSATION [None]
